FAERS Safety Report 11615320 (Version 1)
Quarter: 2015Q4

REPORT INFORMATION
  Report Type: Spontaneous
  Country: US (occurrence: None)
  Receive Date: 20151008
  Receipt Date: 20151008
  Transmission Date: 20160304
  Serious: No
  Sender: FDA-Public Use
  Company Number: None

PATIENT
  Age: 46 Year
  Sex: Female

DRUGS (3)
  1. OPSUMIT [Suspect]
     Active Substance: MACITENTAN
     Indication: COUGH
     Dates: start: 20130724, end: 20150708
  2. OPSUMIT [Suspect]
     Active Substance: MACITENTAN
     Indication: DYSPNOEA
     Dates: start: 20130724, end: 20150708
  3. SILDENAFIL. [Concomitant]
     Active Substance: SILDENAFIL

REACTIONS (3)
  - Cough [None]
  - Product substitution issue [None]
  - Therapy change [None]

NARRATIVE: CASE EVENT DATE: 20150715
